FAERS Safety Report 4959907-9 (Version None)
Quarter: 2006Q1

REPORT INFORMATION
  Report Type: 
  Country: None (occurrence: None)
  Receive Date: 20060331
  Receipt Date: 20050926
  Transmission Date: 20060701
  Serious: Yes (Hospitalization)
  Sender: FDA-Public Use
  Company Number: US-MERCK-0509USA03769

PATIENT
  Age: 61 Year
  Sex: Male
  Weight: 71 kg

DRUGS (1)
  1. VIOXX [Suspect]
     Indication: BACK PAIN
     Route: 048
     Dates: start: 20010301, end: 20030501

REACTIONS (5)
  - CARDIAC DISORDER [None]
  - CEREBRAL THROMBOSIS [None]
  - CHEST PAIN [None]
  - INTERMITTENT CLAUDICATION [None]
  - THROMBOSIS [None]
